FAERS Safety Report 4965933-6 (Version None)
Quarter: 2006Q2

REPORT INFORMATION
  Report Type: 
  Country: None (occurrence: None)
  Receive Date: 20060407
  Receipt Date: 20060328
  Transmission Date: 20061013
  Serious: Yes (Hospitalization, Other)
  Sender: FDA-Public Use
  Company Number: FR-BRISTOL-MYERS SQUIBB COMPANY-13330386

PATIENT
  Age: 85 Year
  Sex: Male

DRUGS (2)
  1. ELISOR TABS 20 MG [Suspect]
     Indication: PROPHYLAXIS
     Route: 048
     Dates: start: 20000101
  2. PLAVIX [Concomitant]
     Dates: start: 20030101

REACTIONS (5)
  - CONFUSIONAL STATE [None]
  - EXTRAPYRAMIDAL DISORDER [None]
  - INFLUENZA LIKE ILLNESS [None]
  - MUSCLE SPASMS [None]
  - STENT PLACEMENT [None]
